FAERS Safety Report 8758904 (Version 2)
Quarter: 2012Q4

REPORT INFORMATION
  Report Type: 
  Country: DE (occurrence: DE)
  Receive Date: 20120829
  Receipt Date: 20120906
  Transmission Date: 20130627
  Serious: Yes (Other)
  Sender: FDA-Public Use
  Company Number: DE-JNJFOC-20120812939

PATIENT
  Age: 44 Year
  Sex: Male

DRUGS (3)
  1. IBUPROFEN [Suspect]
     Indication: PRODUCT USED FOR UNKNOWN INDICATION
     Route: 065
  2. PELARGONIUM SIDOIDES [Suspect]
     Indication: VIRAL INFECTION
     Route: 065
     Dates: start: 200802
  3. SINUPRET [Suspect]
     Indication: VIRAL INFECTION
     Route: 065

REACTIONS (2)
  - Alcoholic liver disease [Unknown]
  - Hepatotoxicity [Unknown]
